FAERS Safety Report 4854822-3 (Version None)
Quarter: 2005Q4

REPORT INFORMATION
  Report Type: 
  Country: None (occurrence: None)
  Receive Date: 20051215
  Receipt Date: 20051128
  Transmission Date: 20060501
  Serious: Yes (Other)
  Sender: FDA-Public Use
  Company Number: PHEH2005US12933

PATIENT
  Age: 62 Year
  Sex: Male

DRUGS (4)
  1. ZOMETA [Suspect]
     Indication: METASTASES TO BONE
     Dosage: 4 MG EVERY MONTH
     Dates: start: 20030702, end: 20040901
  2. ZOMETA [Suspect]
     Dosage: 4 MG EVERY 3 MONTHA
     Dates: start: 20040901, end: 20041101
  3. PREDNISONE [Concomitant]
     Indication: HYPERTHYROIDISM
     Dosage: TAPER DOSE 10-5 MG
     Dates: start: 20041001, end: 20041101
  4. INTERFERON [Concomitant]
     Indication: RENAL CELL CARCINOMA STAGE UNSPECIFIED
     Dosage: 2.5-7.5 ML/DAY FOR 5 DAYS
     Dates: start: 20021201, end: 20030501

REACTIONS (5)
  - BONE DISORDER [None]
  - INFLAMMATION [None]
  - NECROSIS [None]
  - OSTEONECROSIS [None]
  - PURULENT DISCHARGE [None]
